FAERS Safety Report 6463267-4 (Version None)
Quarter: 2009Q4

REPORT INFORMATION
  Report Type: 
  Country: None (occurrence: None)
  Receive Date: 20091130
  Receipt Date: 20090607
  Transmission Date: 20100525
  Serious: Yes (Other)
  Sender: FDA-Public Use
  Company Number: US-AMGEN-QUU350434

PATIENT
  Sex: Male

DRUGS (3)
  1. ENBREL [Suspect]
     Indication: PSORIATIC ARTHROPATHY
     Route: 058
     Dates: start: 20060905
  2. ENBREL [Suspect]
     Indication: PSORIASIS
  3. METHOTREXATE [Concomitant]
     Route: 048
     Dates: start: 20060605

REACTIONS (9)
  - BACK PAIN [None]
  - DRUG INEFFECTIVE [None]
  - GASTROINTESTINAL BACTERIAL INFECTION [None]
  - MUSCULOSKELETAL PAIN [None]
  - NAUSEA [None]
  - NECK PAIN [None]
  - PNEUMONIA [None]
  - PSORIASIS [None]
  - VOMITING [None]
